FAERS Safety Report 5145913-0 (Version None)
Quarter: 2006Q4

REPORT INFORMATION
  Report Type: 
  Country: None (occurrence: None)
  Receive Date: 20061108
  Receipt Date: 20060718
  Transmission Date: 20070319
  Serious: Yes (Other)
  Sender: FDA-Public Use
  Company Number: GB-JNJFOC-20060703474

PATIENT
  Sex: Female

DRUGS (4)
  1. DURAGESIC-50 [Suspect]
     Indication: PAIN IN EXTREMITY
     Route: 062
  2. DURAGESIC-50 [Suspect]
     Indication: ARTHRITIS
     Route: 062
  3. TRAMADOL HCL [Suspect]
     Indication: PAIN IN EXTREMITY
  4. TRAMADOL HCL [Suspect]
     Indication: ARTHRITIS

REACTIONS (6)
  - BODY TEMPERATURE DECREASED [None]
  - DYSPNOEA [None]
  - GAIT DISTURBANCE [None]
  - MELAENA [None]
  - PSYCHOMOTOR RETARDATION [None]
  - SOMNOLENCE [None]
